FAERS Safety Report 12410313 (Version 1)
Quarter: 2016Q2

REPORT INFORMATION
  Report Type: Spontaneous
  Country: US (occurrence: US)
  Receive Date: 20160527
  Receipt Date: 20160527
  Transmission Date: 20160815
  Serious: Yes (Hospitalization, Other)
  Sender: FDA-Public Use
  Company Number: US-UCBSA-2016019209

PATIENT
  Age: 52 Year
  Sex: Female
  Weight: 74 kg

DRUGS (3)
  1. CIMZIA [Suspect]
     Active Substance: CERTOLIZUMAB PEGOL
     Dosage: UNK
     Dates: start: 201601, end: 20160413
  2. XIFAXAN [Concomitant]
     Active Substance: RIFAXIMIN
     Indication: CROHN^S DISEASE
     Dosage: 1 DF, 2X/DAY (BID) (550 MG)
  3. CIMZIA [Suspect]
     Active Substance: CERTOLIZUMAB PEGOL
     Indication: CROHN^S DISEASE
     Dosage: 400 MG, EV 4 WEEKS (STRENGTH: 200MG) (NDC NO: 50474 710 79)
     Dates: start: 2015, end: 201510

REACTIONS (6)
  - Anaemia [Recovering/Resolving]
  - Diabetes mellitus [Not Recovered/Not Resolved]
  - Cardiac failure congestive [Not Recovered/Not Resolved]
  - Influenza [Recovering/Resolving]
  - Product quality issue [Unknown]
  - Infection [Recovered/Resolved]

NARRATIVE: CASE EVENT DATE: 201510
